FAERS Safety Report 21845331 (Version 2)
Quarter: 2023Q2

REPORT INFORMATION
  Report Type: Report from Study
  Country: US (occurrence: US)
  Receive Date: 20230111
  Receipt Date: 20230403
  Transmission Date: 20230722
  Serious: Yes (Other)
  Sender: FDA-Public Use
  Company Number: US-ABBVIE-4265105

PATIENT
  Sex: Male

DRUGS (3)
  1. IMBRUVICA [Suspect]
     Active Substance: IBRUTINIB
     Indication: Chronic lymphocytic leukaemia
     Dosage: 140 MILLIGRAM
     Route: 048
     Dates: start: 20160803
  2. BRUKINSA [Suspect]
     Active Substance: ZANUBRUTINIB
     Indication: Product used for unknown indication
     Route: 065
  3. GEMTESA [Concomitant]
     Active Substance: VIBEGRON
     Indication: Product used for unknown indication

REACTIONS (5)
  - Prostatic operation [Unknown]
  - Muscle spasms [Recovered/Resolved]
  - Muscle discomfort [Unknown]
  - Musculoskeletal stiffness [Unknown]
  - Off label use [Unknown]

NARRATIVE: CASE EVENT DATE: 20230101
